FAERS Safety Report 23177714 (Version 1)
Quarter: 2023Q4

REPORT INFORMATION
  Report Type: Spontaneous
  Country: US (occurrence: None)
  Receive Date: 20231113
  Receipt Date: 20231113
  Transmission Date: 20240109
  Serious: Yes (Other)
  Sender: FDA-Public Use
  Company Number: None

PATIENT
  Sex: Male

DRUGS (11)
  1. HUMIRA [Suspect]
     Active Substance: ADALIMUMAB
     Indication: Rheumatoid arthritis
     Dosage: 40 MG/0.4ML SUBCUTANEOUS??INJECT 1 PEN UNDER THE SKIN (SUBCUTANEOUS INJECTION) EVERY 2 WEEKS
     Route: 058
     Dates: start: 20230301
  2. CELECOXIB [Concomitant]
  3. FOLIC ACID TAB [Concomitant]
  4. GABAPENTIN CAP [Concomitant]
  5. HYDROCHLOROT TAB [Concomitant]
  6. LOSARTAN POT TAB [Concomitant]
  7. MELOXICAM TAB [Concomitant]
  8. METHOTREXATE [Concomitant]
  9. METOPROL SUC [Concomitant]
  10. POT CHLORIDE TAB [Concomitant]
  11. SULFASALAZIN [Concomitant]

REACTIONS (3)
  - Therapy non-responder [None]
  - Pain [None]
  - Therapy interrupted [None]
